FAERS Safety Report 11325055 (Version 1)
Quarter: 2015Q3

REPORT INFORMATION
  Report Type: Spontaneous
  Country: US (occurrence: US)
  Receive Date: 20150730
  Receipt Date: 20150730
  Transmission Date: 20151125
  Serious: No
  Sender: FDA-Public Use
  Company Number: US-BAYER-2015-383036

PATIENT
  Age: 4 Year
  Sex: Female
  Weight: 22 kg

DRUGS (1)
  1. CHILDREN CLARITIN ALLERGY [Suspect]
     Active Substance: LORATADINE
     Indication: URTICARIA
     Dosage: 1 TEASPOON, QD
     Route: 048
     Dates: start: 201411

REACTIONS (2)
  - Feeling hot [Not Recovered/Not Resolved]
  - Off label use [None]

NARRATIVE: CASE EVENT DATE: 201411
